FAERS Safety Report 5730171-6 (Version None)
Quarter: 2008Q2

REPORT INFORMATION
  Report Type: 
  Country: None (occurrence: None)
  Receive Date: 20080507
  Receipt Date: 20080507
  Transmission Date: 20081010
  Serious: Yes (Other)
  Sender: FDA-Public Use
  Company Number: None

PATIENT
  Age: 27 Year
  Sex: Female
  Weight: 88.905 kg

DRUGS (1)
  1. HEPARIN SODIUM [Suspect]
     Indication: COAGULOPATHY
     Dosage: .5 ML 2X A DAY SUBCONJUNCT
     Route: 057
     Dates: start: 20080213, end: 20080405

REACTIONS (5)
  - AORTIC DILATATION [None]
  - DIZZINESS [None]
  - DRUG EXPOSURE DURING PREGNANCY [None]
  - DYSPNOEA [None]
  - LEFT VENTRICULAR HYPERTROPHY [None]
